FAERS Safety Report 16977844 (Version 1)
Quarter: 2019Q4

REPORT INFORMATION
  Report Type: Report from Study
  Country: US (occurrence: US)
  Receive Date: 20191031
  Receipt Date: 20191031
  Transmission Date: 20200122
  Serious: Yes (Other)
  Sender: FDA-Public Use
  Company Number: US-TEVA-2019-US-1128617

PATIENT
  Sex: Female

DRUGS (1)
  1. COPAXONE [Suspect]
     Active Substance: GLATIRAMER ACETATE
     Dosage: FORM STRENGTH: UNKNOWN
     Dates: start: 20190517, end: 20190815

REACTIONS (6)
  - Drug hypersensitivity [Unknown]
  - Injection site pain [Unknown]
  - Stress [Unknown]
  - Injection site vesicles [Unknown]
  - Loss of consciousness [Unknown]
  - Injection site scar [Unknown]

NARRATIVE: CASE EVENT DATE: 2019
